FAERS Safety Report 21974460 (Version 3)
Quarter: 2023Q1

REPORT INFORMATION
  Report Type: Spontaneous
  Country: AU (occurrence: AU)
  Receive Date: 20230209
  Receipt Date: 20230328
  Transmission Date: 20230417
  Serious: Yes (Hospitalization, Disabling, Other)
  Sender: FDA-Public Use
  Company Number: AU-PFIZER INC-202300047881

PATIENT
  Sex: Male
  Weight: 74 kg

DRUGS (4)
  1. AVIBACTAM SODIUM\CEFTAZIDIME [Suspect]
     Active Substance: AVIBACTAM SODIUM\CEFTAZIDIME
     Indication: Pseudomonas infection
     Dosage: 2000/500MG 8 HOURLY INJECTION/INFUSION
     Route: 042
     Dates: start: 202207
  2. AVIBACTAM SODIUM\CEFTAZIDIME [Suspect]
     Active Substance: AVIBACTAM SODIUM\CEFTAZIDIME
     Indication: Osteomyelitis
  3. AZTREONAM [Suspect]
     Active Substance: AZTREONAM
     Indication: Pseudomonas infection
     Dosage: 2 GRAMS 8 HOURLY
     Route: 042
     Dates: start: 20220623
  4. AZTREONAM [Suspect]
     Active Substance: AZTREONAM
     Indication: Osteomyelitis

REACTIONS (3)
  - Renal cell carcinoma [Unknown]
  - Vascular device infection [Unknown]
  - Off label use [Unknown]

NARRATIVE: CASE EVENT DATE: 20220623
